FAERS Safety Report 5927436-1 (Version None)
Quarter: 2008Q4

REPORT INFORMATION
  Report Type: 
  Country: None (occurrence: None)
  Receive Date: 20081022
  Receipt Date: 20081022
  Transmission Date: 20090506
  Serious: Yes (Other)
  Sender: FDA-Public Use
  Company Number: None

PATIENT
  Sex: Male
  Weight: 68.0396 kg

DRUGS (3)
  1. TOPAMAX [Suspect]
     Indication: CONVULSION PROPHYLAXIS
     Dosage: 200 MG 2 TIMES DAY
     Dates: start: 20080926
  2. TOPAMAX [Suspect]
     Indication: DRUG DETOXIFICATION
     Dosage: 200 MG 2 TIMES DAY
     Dates: start: 20080926
  3. PRISTIQ [Suspect]
     Indication: DEPRESSION
     Dosage: 50 MG 1 X DAY
     Dates: start: 20080814

REACTIONS (1)
  - DRUG DETOXIFICATION [None]
